FAERS Safety Report 5454872-2 (Version None)
Quarter: 2007Q3

REPORT INFORMATION
  Report Type: 
  Country: None (occurrence: None)
  Receive Date: 20070917
  Receipt Date: 20061002
  Transmission Date: 20080115
  Serious: No
  Sender: FDA-Public Use
  Company Number: US-ASTRAZENECA-2006UW19117

PATIENT
  Age: 62 Year
  Sex: Female
  Weight: 53.5 kg

DRUGS (6)
  1. SEROQUEL [Suspect]
     Indication: SLEEP DISORDER
     Route: 048
     Dates: start: 20060929
  2. KLONOPIN [Concomitant]
  3. EFFEXOR [Concomitant]
  4. ADDERALL [Concomitant]
  5. NEURONTIN [Concomitant]
  6. AMBIEN [Concomitant]

REACTIONS (5)
  - DYSARTHRIA [None]
  - FEELING ABNORMAL [None]
  - NERVOUSNESS [None]
  - SOMNOLENCE [None]
  - TREMOR [None]
